FAERS Safety Report 4964001-7 (Version None)
Quarter: 2006Q1

REPORT INFORMATION
  Report Type: 
  Country: None (occurrence: None)
  Receive Date: 20060330
  Receipt Date: 20060323
  Transmission Date: 20060701
  Serious: Yes (Hospitalization, Other)
  Sender: FDA-Public Use
  Company Number: 2006041293

PATIENT
  Sex: Female
  Weight: 86.1834 kg

DRUGS (11)
  1. NEURONTIN [Suspect]
     Indication: NEURALGIA
     Dosage: (3 IN 1 D)
  2. GABAPENTIN [Suspect]
     Indication: NEURALGIA
     Dosage: 900 MG (300 MG, 3 IN 1 D)
     Dates: start: 20060112
  3. ZYRTEC [Concomitant]
  4. LASIX [Concomitant]
  5. VICODIN [Concomitant]
  6. REGLAN [Concomitant]
  7. HYDROCHLOROTHIAZIDE [Concomitant]
  8. SODIUM BICARBONATE IN PLASTIC CONTAINER [Concomitant]
  9. LIPITOR [Concomitant]
  10. HUMALOG [Concomitant]
  11. TRAVATAN [Concomitant]

REACTIONS (7)
  - DRUG INEFFECTIVE [None]
  - DYSPEPSIA [None]
  - ECONOMIC PROBLEM [None]
  - FOOT FRACTURE [None]
  - NAUSEA [None]
  - ROAD TRAFFIC ACCIDENT [None]
  - ULCER [None]
